FAERS Safety Report 7752910-5 (Version None)
Quarter: 2011Q3

REPORT INFORMATION
  Report Type: 
  Country: None (occurrence: None)
  Receive Date: 20110913
  Receipt Date: 20110830
  Transmission Date: 20111222
  Serious: Yes (Other)
  Sender: FDA-Public Use
  Company Number: 2011MA012810

PATIENT
  Age: 7 Month
  Sex: Male

DRUGS (2)
  1. CORTICOSTEROID (NO PREF. NAME) [Suspect]
     Indication: HAEMANGIOMA
  2. PROPRANOLOL HYDROCHLORIDE [Suspect]
     Indication: HAEMANGIOMA
     Dosage: 1.9 MG/KG, QD

REACTIONS (1)
  - BLOOD PRESSURE DECREASED [None]
